FAERS Safety Report 15065931 (Version 2)
Quarter: 2018Q2

REPORT INFORMATION
  Report Type: Report from Study
  Country: US (occurrence: US)
  Receive Date: 20180626
  Receipt Date: 20180628
  Transmission Date: 20180711
  Serious: No
  Sender: FDA-Public Use
  Company Number: PHEH2018US024261

PATIENT
  Age: 38 Day
  Sex: Female

DRUGS (1)
  1. ILARIS [Suspect]
     Active Substance: CANAKINUMAB
     Indication: CRYOPYRIN ASSOCIATED PERIODIC SYNDROME
     Dosage: 150 MG, Q8W
     Route: 058

REACTIONS (5)
  - Vomiting [Unknown]
  - Dyspnoea exertional [Unknown]
  - Asthenia [Unknown]
  - Nausea [Unknown]
  - Arthralgia [Unknown]
